FAERS Safety Report 9889681 (Version 1)
Quarter: 2014Q1

REPORT INFORMATION
  Report Type: Spontaneous
  Country: US (occurrence: US)
  Receive Date: 20140211
  Receipt Date: 20140211
  Transmission Date: 20141002
  Serious: Yes (Other)
  Sender: FDA-Public Use
  Company Number: US-PFIZER INC-2014037411

PATIENT
  Age: 56 Year
  Sex: Female
  Weight: 58.96 kg

DRUGS (11)
  1. LYRICA [Suspect]
     Indication: PAIN
     Dosage: 200 MG, 3X/DAY
     Dates: end: 2014
  2. PROTONIX [Concomitant]
     Indication: GASTROOESOPHAGEAL REFLUX DISEASE
     Dosage: 40 MG, 1X/DAY
  3. PLAVIX [Concomitant]
     Indication: ANTICOAGULANT THERAPY
     Dosage: 75 MG, 1X/DAY
  4. KLONOPIN [Concomitant]
     Indication: INSOMNIA
     Dosage: 2 MG, 1X/DAY
  5. XANAX [Concomitant]
     Indication: POST-TRAUMATIC STRESS DISORDER
     Dosage: 1 MG, 2X/DAY
  6. PRAVASTATIN [Concomitant]
     Indication: BLOOD CHOLESTEROL INCREASED
     Dosage: 40 MG, 1X/DAY
  7. NITROSTAT [Concomitant]
     Dosage: UNK
  8. CARTIA XT [Concomitant]
     Indication: CARDIAC DISORDER
     Dosage: 180 MG, 1X/DAY
  9. SOMA [Concomitant]
     Indication: OSTEOARTHRITIS
     Dosage: 250 MG, AS NEEDED
  10. SOMA [Concomitant]
     Indication: INTERVERTEBRAL DISC DEGENERATION
  11. ACETYLSALICYLIC ACID [Concomitant]
     Indication: ANTICOAGULANT THERAPY
     Dosage: 81 MG, 1X/DAY

REACTIONS (5)
  - Off label use [Unknown]
  - Parkinson^s disease [Unknown]
  - Myoclonus [Unknown]
  - Blood urea increased [Unknown]
  - Blood sodium decreased [Unknown]
